FAERS Safety Report 16782798 (Version 2)
Quarter: 2021Q4

REPORT INFORMATION
  Report Type: Spontaneous
  Country: JP (occurrence: JP)
  Receive Date: 20190906
  Receipt Date: 20211222
  Transmission Date: 20220303
  Serious: Yes (Life-Threatening, Hospitalization, Other)
  Sender: FDA-Public Use
  Company Number: JP-BAYER-2019-158964

PATIENT

DRUGS (9)
  1. EYLEA [Suspect]
     Active Substance: AFLIBERCEPT
     Indication: Age-related macular degeneration
     Dosage: RIGHT EYE, 0.05 ML, ONCE
     Route: 031
     Dates: start: 20180810, end: 20180810
  2. EYLEA [Suspect]
     Active Substance: AFLIBERCEPT
     Dosage: RIGHT EYE, 0.05 ML, ONCE
     Route: 031
     Dates: start: 20180907, end: 20180907
  3. EYLEA [Suspect]
     Active Substance: AFLIBERCEPT
     Dosage: RIGHT EYE, 0.05 ML, ONCE
     Route: 031
     Dates: start: 20181012, end: 20181012
  4. EYLEA [Suspect]
     Active Substance: AFLIBERCEPT
     Dosage: RIGHT EYE, 0.05 ML, ONCE
     Route: 031
     Dates: start: 20181109, end: 20181109
  5. EYLEA [Suspect]
     Active Substance: AFLIBERCEPT
     Dosage: RIGHT EYE, 0.05 ML, ONCE
     Route: 031
     Dates: start: 20181214, end: 20181214
  6. EYLEA [Suspect]
     Active Substance: AFLIBERCEPT
     Dosage: RIGHT EYE, 0.05 ML, ONCE
     Route: 031
     Dates: start: 20190118, end: 20190118
  7. EYLEA [Suspect]
     Active Substance: AFLIBERCEPT
     Dosage: RIGHT EYE, 0.05 ML, ONCE
     Route: 031
     Dates: start: 20190222, end: 20190222
  8. EYLEA [Suspect]
     Active Substance: AFLIBERCEPT
     Dosage: RIGHT EYE, 0.05 ML, ONCE
     Route: 031
     Dates: start: 20190329
  9. GATIFLOXACIN [Suspect]
     Active Substance: GATIFLOXACIN
     Indication: Product used for unknown indication
     Dosage: RIGHT EYE

REACTIONS (1)
  - Putamen haemorrhage [Not Recovered/Not Resolved]

NARRATIVE: CASE EVENT DATE: 20190411
